FAERS Safety Report 14399004 (Version 2)
Quarter: 2018Q1

REPORT INFORMATION
  Report Type: Spontaneous
  Country: US (occurrence: US)
  Receive Date: 20180117
  Receipt Date: 20180223
  Transmission Date: 20180509
  Serious: Yes (Other)
  Sender: FDA-Public Use
  Company Number: US-JNJFOC-20171214608

PATIENT
  Age: 80 Year
  Sex: Male

DRUGS (2)
  1. XARELTO [Suspect]
     Active Substance: RIVAROXABAN
     Indication: MENTAL STATUS CHANGES
     Route: 048
     Dates: start: 20150609, end: 20150613
  2. XARELTO [Suspect]
     Active Substance: RIVAROXABAN
     Indication: FIBRIN D DIMER INCREASED
     Route: 048
     Dates: start: 20150609, end: 20150613

REACTIONS (3)
  - Product use in unapproved indication [Unknown]
  - Gastrointestinal haemorrhage [Recovering/Resolving]
  - Off label use [Unknown]

NARRATIVE: CASE EVENT DATE: 20150609
